FAERS Safety Report 7052741-8 (Version None)
Quarter: 2010Q4

REPORT INFORMATION
  Report Type: 
  Country: None (occurrence: None)
  Receive Date: 20101013
  Receipt Date: 20101005
  Transmission Date: 20110411
  Serious: Yes (Other)
  Sender: FDA-Public Use
  Company Number: 2010SP053357

PATIENT
  Age: 41 Year
  Sex: Female
  Weight: 102.5129 kg

DRUGS (5)
  1. IMPLANON [Suspect]
     Indication: CONTRACEPTION
     Dosage: SBDE
     Route: 059
     Dates: end: 20100303
  2. IMPLANON [Suspect]
     Indication: CONTRACEPTION
     Dosage: SBDE
     Route: 059
     Dates: start: 20100303
  3. ZOLOFT [Concomitant]
  4. VICODIN [Concomitant]
  5. TIZANIDINE [Concomitant]

REACTIONS (2)
  - ABDOMINAL DISCOMFORT [None]
  - GASTROINTESTINAL DISORDER [None]
